FAERS Safety Report 25886620 (Version 1)
Quarter: 2025Q4

REPORT INFORMATION
  Report Type: Spontaneous
  Country: EU (occurrence: EU)
  Receive Date: 20251006
  Receipt Date: 20251006
  Transmission Date: 20260117
  Serious: Yes (Hospitalization, Other)
  Sender: MYLAN
  Company Number: None

PATIENT
  Age: 60 Year
  Sex: Male
  Weight: 88 kg

DRUGS (24)
  1. TRAMADOL [Interacting]
     Active Substance: TRAMADOL
     Indication: Product used for unknown indication
     Dosage: 3 GRAM, 1 TOTAL (3 GRAMS SINGLE DOSE)
     Dates: start: 20250811, end: 20250811
  2. TRAMADOL [Interacting]
     Active Substance: TRAMADOL
     Dosage: 3 GRAM, 1 TOTAL (3 GRAMS SINGLE DOSE)
     Route: 048
     Dates: start: 20250811, end: 20250811
  3. TRAMADOL [Interacting]
     Active Substance: TRAMADOL
     Dosage: 3 GRAM, 1 TOTAL (3 GRAMS SINGLE DOSE)
     Route: 048
     Dates: start: 20250811, end: 20250811
  4. TRAMADOL [Interacting]
     Active Substance: TRAMADOL
     Dosage: 3 GRAM, 1 TOTAL (3 GRAMS SINGLE DOSE)
     Dates: start: 20250811, end: 20250811
  5. RIVOTRIL [Interacting]
     Active Substance: CLONAZEPAM
     Indication: Product used for unknown indication
     Dosage: 30 MILLIGRAM, 1 TOTAL (30 MG SINGLE DOSE) (60 TABLETS)
     Dates: start: 20250811, end: 20250811
  6. RIVOTRIL [Interacting]
     Active Substance: CLONAZEPAM
     Dosage: 30 MILLIGRAM, 1 TOTAL (30 MG SINGLE DOSE) (60 TABLETS)
     Route: 048
     Dates: start: 20250811, end: 20250811
  7. RIVOTRIL [Interacting]
     Active Substance: CLONAZEPAM
     Dosage: 30 MILLIGRAM, 1 TOTAL (30 MG SINGLE DOSE) (60 TABLETS)
     Route: 048
     Dates: start: 20250811, end: 20250811
  8. RIVOTRIL [Interacting]
     Active Substance: CLONAZEPAM
     Dosage: 30 MILLIGRAM, 1 TOTAL (30 MG SINGLE DOSE) (60 TABLETS)
     Dates: start: 20250811, end: 20250811
  9. GABAPENTIN [Interacting]
     Active Substance: GABAPENTIN
     Indication: Product used for unknown indication
     Dosage: 27 GRAM, 1 TOTAL (27 GRAMS SINGLE DOSE)
     Dates: start: 20250811, end: 20250811
  10. GABAPENTIN [Interacting]
     Active Substance: GABAPENTIN
     Dosage: 27 GRAM, 1 TOTAL (27 GRAMS SINGLE DOSE)
     Route: 048
     Dates: start: 20250811, end: 20250811
  11. GABAPENTIN [Interacting]
     Active Substance: GABAPENTIN
     Dosage: 27 GRAM, 1 TOTAL (27 GRAMS SINGLE DOSE)
     Route: 048
     Dates: start: 20250811, end: 20250811
  12. GABAPENTIN [Interacting]
     Active Substance: GABAPENTIN
     Dosage: 27 GRAM, 1 TOTAL (27 GRAMS SINGLE DOSE)
     Dates: start: 20250811, end: 20250811
  13. TRAMADOL [Concomitant]
     Active Substance: TRAMADOL
     Indication: Pain
     Dosage: 100 MILLIGRAM, BID (EVERY 12 HOURS) (50MG 2-0-2)
     Dates: start: 20180604, end: 20250811
  14. TRAMADOL [Concomitant]
     Active Substance: TRAMADOL
     Dosage: 100 MILLIGRAM, BID (EVERY 12 HOURS) (50MG 2-0-2)
     Route: 048
     Dates: start: 20180604, end: 20250811
  15. TRAMADOL [Concomitant]
     Active Substance: TRAMADOL
     Dosage: 100 MILLIGRAM, BID (EVERY 12 HOURS) (50MG 2-0-2)
     Route: 048
     Dates: start: 20180604, end: 20250811
  16. TRAMADOL [Concomitant]
     Active Substance: TRAMADOL
     Dosage: 100 MILLIGRAM, BID (EVERY 12 HOURS) (50MG 2-0-2)
     Dates: start: 20180604, end: 20250811
  17. GABAPENTIN [Concomitant]
     Active Substance: GABAPENTIN
     Indication: Pain
     Dosage: 400 MILLIGRAM, QD (300MG 1-0-0.5)
     Dates: start: 20180523, end: 20250811
  18. GABAPENTIN [Concomitant]
     Active Substance: GABAPENTIN
     Dosage: 400 MILLIGRAM, QD (300MG 1-0-0.5)
     Route: 048
     Dates: start: 20180523, end: 20250811
  19. GABAPENTIN [Concomitant]
     Active Substance: GABAPENTIN
     Dosage: 400 MILLIGRAM, QD (300MG 1-0-0.5)
     Route: 048
     Dates: start: 20180523, end: 20250811
  20. GABAPENTIN [Concomitant]
     Active Substance: GABAPENTIN
     Dosage: 400 MILLIGRAM, QD (300MG 1-0-0.5)
     Dates: start: 20180523, end: 20250811
  21. RIVOTRIL [Concomitant]
     Active Substance: CLONAZEPAM
     Indication: Drug dependence
     Dosage: 1 MILLIGRAM, BID (EVERY 12 HOURS) (0.5MG 1-0-1, 60 TABLETS)
     Dates: start: 20180504, end: 20250811
  22. RIVOTRIL [Concomitant]
     Active Substance: CLONAZEPAM
     Dosage: 1 MILLIGRAM, BID (EVERY 12 HOURS) (0.5MG 1-0-1, 60 TABLETS)
     Route: 048
     Dates: start: 20180504, end: 20250811
  23. RIVOTRIL [Concomitant]
     Active Substance: CLONAZEPAM
     Dosage: 1 MILLIGRAM, BID (EVERY 12 HOURS) (0.5MG 1-0-1, 60 TABLETS)
     Route: 048
     Dates: start: 20180504, end: 20250811
  24. RIVOTRIL [Concomitant]
     Active Substance: CLONAZEPAM
     Dosage: 1 MILLIGRAM, BID (EVERY 12 HOURS) (0.5MG 1-0-1, 60 TABLETS)
     Dates: start: 20180504, end: 20250811

REACTIONS (6)
  - Acute kidney injury [Recovered/Resolved]
  - Suicide attempt [Unknown]
  - Blood creatine phosphokinase increased [Recovered/Resolved]
  - Hallucination, visual [Recovered/Resolved]
  - Somnolence [Recovered/Resolved]
  - Intentional overdose [Recovered/Resolved]

NARRATIVE: CASE EVENT DATE: 20250811
